FAERS Safety Report 7318663-X (Version None)
Quarter: 2011Q1

REPORT INFORMATION
  Report Type: 
  Country: None (occurrence: None)
  Receive Date: 20110228
  Receipt Date: 20110214
  Transmission Date: 20110831
  Serious: Yes (Other)
  Sender: FDA-Public Use
  Company Number: PL-RANBAXY-2011RR-41927

PATIENT
  Sex: Female

DRUGS (1)
  1. PRAVATOR [Suspect]
     Dosage: UNK
     Route: 048
     Dates: start: 20110101

REACTIONS (2)
  - VISION BLURRED [None]
  - MUSCULAR DYSTROPHY [None]
